FAERS Safety Report 24449171 (Version 1)
Quarter: 2024Q4

REPORT INFORMATION
  Report Type: Report from Study
  Country: US (occurrence: US)
  Receive Date: 20241017
  Receipt Date: 20241017
  Transmission Date: 20250115
  Serious: Yes (Other)
  Sender: ABBVIE
  Company Number: US-ABBVIE-5964260

PATIENT
  Sex: Female

DRUGS (1)
  1. RINVOQ [Suspect]
     Active Substance: UPADACITINIB
     Indication: Rheumatoid arthritis
     Route: 048

REACTIONS (6)
  - Chest discomfort [Recovering/Resolving]
  - Respiratory disorder [Recovering/Resolving]
  - Cough [Recovering/Resolving]
  - Dry eye [Unknown]
  - Dry mouth [Unknown]
  - Corneal scar [Unknown]
